FAERS Safety Report 20337803 (Version 1)
Quarter: 2022Q1

REPORT INFORMATION
  Report Type: Spontaneous
  Country: US (occurrence: US)
  Receive Date: 20220114
  Receipt Date: 20220114
  Transmission Date: 20220424
  Serious: No
  Sender: FDA-Public Use
  Company Number: US-SA-SAC20220110000646

PATIENT
  Sex: Female

DRUGS (1)
  1. DUPIXENT [Suspect]
     Active Substance: DUPILUMAB
     Indication: Asthma
     Dosage: 300 MG/2ML: INJECT 1 SYRINGE QOW
     Route: 058
     Dates: start: 20200729

REACTIONS (2)
  - Impaired quality of life [Not Recovered/Not Resolved]
  - Unevaluable event [Not Recovered/Not Resolved]
